FAERS Safety Report 9739988 (Version 8)
Quarter: 2015Q1

REPORT INFORMATION
  Report Type: Report from Study
  Country: JP (occurrence: JP)
  Receive Date: 20131209
  Receipt Date: 20150303
  Transmission Date: 20150721
  Serious: No
  Sender: FDA-Public Use
  Company Number: JP-GLAXOSMITHKLINE-B0944901A

PATIENT

DRUGS (49)
  1. OFATUMUMAB [Suspect]
     Active Substance: OFATUMUMAB
     Indication: CHRONIC LYMPHOCYTIC LEUKAEMIA
     Dosage: 300 MG, QD
     Route: 041
     Dates: start: 20131022, end: 20131022
  2. OFATUMUMAB [Suspect]
     Active Substance: OFATUMUMAB
     Dosage: 2000 MG, QD
     Route: 041
     Dates: start: 20131105, end: 20131105
  3. PREDNISOLONE. [Suspect]
     Active Substance: PREDNISOLONE
     Dosage: 100 MG, QD
     Route: 042
     Dates: start: 20131224, end: 20131224
  4. ACETAMINOPHEN. [Concomitant]
     Active Substance: ACETAMINOPHEN
     Dosage: 400 MG, QD
     Route: 048
     Dates: start: 20140204, end: 20140204
  5. ATARAXP [Concomitant]
     Dosage: 25 MG, QD
     Route: 048
     Dates: start: 20131105, end: 20131105
  6. ATARAXP [Concomitant]
     Dosage: 25 MG, QD
     Route: 048
     Dates: start: 20140204, end: 20140204
  7. ZOVIRAX [Concomitant]
     Active Substance: ACYCLOVIR
     Indication: INFECTION PROPHYLAXIS
     Dosage: UNK UNK, 1D
  8. OFATUMUMAB [Suspect]
     Active Substance: OFATUMUMAB
     Dosage: 2000 MG, QD
     Route: 041
     Dates: start: 20140527, end: 20140527
  9. PREDNISOLONE. [Suspect]
     Active Substance: PREDNISOLONE
     Dosage: 100 MG, QD
     Route: 042
     Dates: start: 20140107, end: 20140107
  10. ACETAMINOPHEN. [Concomitant]
     Active Substance: ACETAMINOPHEN
     Dosage: 400 MG, QD
     Route: 048
     Dates: start: 20131029, end: 20131029
  11. ACETAMINOPHEN. [Concomitant]
     Active Substance: ACETAMINOPHEN
     Dosage: 400 MG, QD
     Route: 048
     Dates: start: 20131224, end: 20131224
  12. ACETAMINOPHEN. [Concomitant]
     Active Substance: ACETAMINOPHEN
     Dosage: 400 MG, QD
     Route: 048
     Dates: start: 20140107, end: 20140107
  13. ACETAMINOPHEN. [Concomitant]
     Active Substance: ACETAMINOPHEN
     Dosage: 400 MG, QD
     Route: 048
     Dates: start: 20140401, end: 20140401
  14. OFATUMUMAB [Suspect]
     Active Substance: OFATUMUMAB
     Dosage: 2000 MG, QD
     Route: 041
     Dates: start: 20131112, end: 20131112
  15. OFATUMUMAB [Suspect]
     Active Substance: OFATUMUMAB
     Dosage: 2000 MG, QD
     Route: 041
     Dates: start: 20140107, end: 20140107
  16. OFATUMUMAB [Suspect]
     Active Substance: OFATUMUMAB
     Dosage: 2000 MG, QD
     Route: 041
     Dates: start: 20140204, end: 20140204
  17. PREDNISOLONE. [Suspect]
     Active Substance: PREDNISOLONE
     Dosage: 100 MG, QD
     Route: 042
     Dates: start: 20131105, end: 20131105
  18. PREDNISOLONE. [Suspect]
     Active Substance: PREDNISOLONE
     Dosage: 100 MG, QD
     Route: 042
     Dates: start: 20131112, end: 20131112
  19. PREDNISOLONE. [Suspect]
     Active Substance: PREDNISOLONE
     Dosage: 100 MG, QD
     Route: 042
     Dates: start: 20140527, end: 20140527
  20. ATARAXP [Concomitant]
     Dosage: 25 MG, QD
     Route: 048
     Dates: start: 20140401, end: 20140401
  21. OFATUMUMAB [Suspect]
     Active Substance: OFATUMUMAB
     Dosage: 2000 MG, QD
     Route: 041
     Dates: start: 20131119, end: 20131119
  22. ACETAMINOPHEN. [Concomitant]
     Active Substance: ACETAMINOPHEN
     Dosage: 400 MG, QD
     Route: 048
     Dates: start: 20131112, end: 20131112
  23. ATARAXP [Concomitant]
     Dosage: 25 MG, QD
     Route: 048
     Dates: start: 20131029, end: 20131029
  24. ATARAXP [Concomitant]
     Dosage: 25 MG, QD
     Route: 048
     Dates: start: 20131112, end: 20131112
  25. ATARAXP [Concomitant]
     Dosage: 25 MG, QD
     Route: 048
     Dates: start: 20140527, end: 20140527
  26. OFATUMUMAB [Suspect]
     Active Substance: OFATUMUMAB
     Dosage: 2000 MG, QD
     Route: 041
     Dates: start: 20131224, end: 20131224
  27. ACETAMINOPHEN. [Concomitant]
     Active Substance: ACETAMINOPHEN
     Dosage: 400 MG, QD
     Route: 048
     Dates: start: 20131126, end: 20131126
  28. ACETAMINOPHEN. [Concomitant]
     Active Substance: ACETAMINOPHEN
     Dosage: 400 MG, QD
     Route: 048
     Dates: start: 20140527, end: 20140527
  29. ATARAXP [Concomitant]
     Dosage: 25 MG, QD
     Route: 048
     Dates: start: 20131126, end: 20131126
  30. ATARAXP [Concomitant]
     Dosage: 25 MG, QD
     Route: 048
     Dates: start: 20131224, end: 20131224
  31. OFATUMUMAB [Suspect]
     Active Substance: OFATUMUMAB
     Dosage: 2000 MG, QD
     Route: 041
     Dates: start: 20131029, end: 20131029
  32. OFATUMUMAB [Suspect]
     Active Substance: OFATUMUMAB
     Dosage: 2000 MG, QD
     Route: 041
     Dates: start: 20140701, end: 20140701
  33. PREDNISOLONE. [Suspect]
     Active Substance: PREDNISOLONE
     Dosage: 100 MG, QD
     Route: 042
     Dates: start: 20140204, end: 20140204
  34. PREDNISOLONE. [Suspect]
     Active Substance: PREDNISOLONE
     Dosage: 60 MG, QD
     Route: 042
     Dates: start: 20140701, end: 20140701
  35. ACETAMINOPHEN. [Concomitant]
     Active Substance: ACETAMINOPHEN
     Dosage: 400 MG, QD
     Route: 048
     Dates: start: 20131105, end: 20131105
  36. ACETAMINOPHEN. [Concomitant]
     Active Substance: ACETAMINOPHEN
     Dosage: 400 MG, QD
     Route: 048
     Dates: start: 20131119, end: 20131119
  37. ATARAXP [Concomitant]
     Dosage: 25 MG, QD
     Route: 048
     Dates: start: 20131119, end: 20131119
  38. OFATUMUMAB [Suspect]
     Active Substance: OFATUMUMAB
     Dosage: 2000 MG, QD
     Route: 041
     Dates: start: 20131126, end: 20131126
  39. PREDNISOLONE. [Suspect]
     Active Substance: PREDNISOLONE
     Indication: PREMEDICATION
     Dosage: 100 MG, QD
     Route: 042
     Dates: start: 20131022, end: 20131022
  40. PREDNISOLONE. [Suspect]
     Active Substance: PREDNISOLONE
     Dosage: 100 MG, QD
     Route: 042
     Dates: start: 20131029, end: 20131029
  41. PREDNISOLONE. [Suspect]
     Active Substance: PREDNISOLONE
     Dosage: 100 MG, QD
     Route: 042
     Dates: start: 20131119, end: 20131119
  42. PREDNISOLONE. [Suspect]
     Active Substance: PREDNISOLONE
     Dosage: 100 MG, QD
     Route: 042
     Dates: start: 20131126, end: 20131126
  43. ACETAMINOPHEN. [Concomitant]
     Active Substance: ACETAMINOPHEN
     Indication: PREMEDICATION
     Dosage: 400 MG, QD
     Route: 048
     Dates: start: 20131022, end: 20131022
  44. ATARAXP [Concomitant]
     Indication: PREMEDICATION
     Dosage: 25 MG, QD
     Route: 048
     Dates: start: 20131022, end: 20131022
  45. ATARAXP [Concomitant]
     Dosage: 25 MG, QD
     Route: 048
     Dates: start: 20140107, end: 20140107
  46. ATARAXP [Concomitant]
     Dosage: 25 MG, QD
     Route: 048
     Dates: start: 20140701, end: 20140701
  47. OFATUMUMAB [Suspect]
     Active Substance: OFATUMUMAB
     Dosage: 2000 MG, QD
     Route: 041
     Dates: start: 20140401, end: 20140401
  48. PREDNISOLONE. [Suspect]
     Active Substance: PREDNISOLONE
     Dosage: 100 MG, QD
     Route: 042
     Dates: start: 20140401, end: 20140401
  49. ACETAMINOPHEN. [Concomitant]
     Active Substance: ACETAMINOPHEN
     Dosage: 400 MG, QD
     Route: 048
     Dates: start: 20140701, end: 20140701

REACTIONS (3)
  - Fatigue [Recovered/Resolved]
  - Oedema peripheral [Not Recovered/Not Resolved]
  - Peripheral sensory neuropathy [Recovered/Resolved]

NARRATIVE: CASE EVENT DATE: 20131112
